FAERS Safety Report 21597953 (Version 2)
Quarter: 2023Q1

REPORT INFORMATION
  Report Type: Spontaneous
  Country: US (occurrence: US)
  Receive Date: 20221115
  Receipt Date: 20230103
  Transmission Date: 20230418
  Serious: Yes (Other)
  Sender: FDA-Public Use
  Company Number: US-PFIZER INC-202201295996

PATIENT
  Age: 39 Year
  Sex: Male

DRUGS (7)
  1. BOSULIF [Suspect]
     Active Substance: BOSUTINIB MONOHYDRATE
     Dosage: 400 MG, 1X/DAY
     Route: 048
  2. NAPROXEN SODIUM [Concomitant]
     Active Substance: NAPROXEN SODIUM
     Dosage: UNK
  3. BUPROPION HYDROCHLORIDE [Concomitant]
     Active Substance: BUPROPION HYDROCHLORIDE
     Dosage: UNK
  4. URSODIOL [Concomitant]
     Active Substance: URSODIOL
     Dosage: 300 MG
  5. ACYCLOVIR [Concomitant]
     Active Substance: ACYCLOVIR
     Dosage: UNK
  6. METHOCARBAMOL [Concomitant]
     Active Substance: METHOCARBAMOL
     Dosage: UNK
  7. ASPIRIN [Concomitant]
     Active Substance: ASPIRIN
     Dosage: UNK (LOW DOSE)

REACTIONS (3)
  - Blast cell crisis [Unknown]
  - Neoplasm progression [Unknown]
  - Respiratory tract infection [Unknown]
